FAERS Safety Report 16733443 (Version 5)
Quarter: 2019Q3

REPORT INFORMATION
  Report Type: Report from Study
  Country: CA (occurrence: CA)
  Receive Date: 20190823
  Receipt Date: 20190913
  Transmission Date: 20191005
  Serious: Yes (Disabling, Other)
  Sender: FDA-Public Use
  Company Number: CA-AMGEN-CANCT2019059800

PATIENT
  Age: 45 Year
  Sex: Female

DRUGS (6)
  1. MMR [Suspect]
     Active Substance: MEASLES-MUMPS-RUBELLA VIRUS VACCINE
     Indication: PRODUCT USED FOR UNKNOWN INDICATION
     Dosage: UNK
     Route: 065
     Dates: start: 20190514
  2. ESCITALOPRAM OXALATE. [Suspect]
     Active Substance: ESCITALOPRAM OXALATE
     Indication: ANXIETY
     Dosage: 10 MILLIGRAM, QD
     Route: 065
     Dates: start: 20190715
  3. AIMOVIG [Suspect]
     Active Substance: ERENUMAB-AOOE
     Dosage: 140 MILLIGRAM, QMO
     Route: 058
     Dates: end: 20190830
  4. ESCITALOPRAM OXALATE. [Suspect]
     Active Substance: ESCITALOPRAM OXALATE
     Indication: DEPRESSION
  5. AIMOVIG [Suspect]
     Active Substance: ERENUMAB-AOOE
     Indication: MIGRAINE
     Dosage: 140 MILLIGRAM, QMO
     Route: 058
     Dates: start: 20190314
  6. AIMOVIG [Suspect]
     Active Substance: ERENUMAB-AOOE
     Dosage: 140 MILLIGRAM, QMO
     Route: 058

REACTIONS (23)
  - Hemiplegic migraine [Recovering/Resolving]
  - Viral infection [Unknown]
  - Malaise [Unknown]
  - Depression [Not Recovered/Not Resolved]
  - Diarrhoea [Recovering/Resolving]
  - Tremor [Recovering/Resolving]
  - Pyrexia [Unknown]
  - Lower respiratory tract infection [Recovering/Resolving]
  - Palpitations [Unknown]
  - Hemiplegia [Not Recovered/Not Resolved]
  - Pain [Unknown]
  - Oropharyngeal pain [Unknown]
  - Blood pressure abnormal [Unknown]
  - Speech disorder [Recovering/Resolving]
  - Serotonin syndrome [Recovering/Resolving]
  - Dysarthria [Recovering/Resolving]
  - Migraine [Unknown]
  - Anxiety [Not Recovered/Not Resolved]
  - Cluster headache [Recovering/Resolving]
  - Constipation [Unknown]
  - Muscle spasms [Recovering/Resolving]
  - Influenza [Unknown]
  - Personality change [Unknown]

NARRATIVE: CASE EVENT DATE: 20190514
